FAERS Safety Report 16120351 (Version 1)
Quarter: 2019Q1

REPORT INFORMATION
  Report Type: Report from Study
  Country: EG (occurrence: EG)
  Receive Date: 20190326
  Receipt Date: 20190326
  Transmission Date: 20190418
  Serious: Yes (Other)
  Sender: FDA-Public Use
  Company Number: PHHY2019EG060879

PATIENT
  Age: 70 Year
  Sex: Male

DRUGS (2)
  1. AFINITOR [Suspect]
     Active Substance: EVEROLIMUS
     Indication: COLON CANCER METASTATIC
     Dosage: 5 MG, QD
     Route: 048
     Dates: start: 20190125, end: 20190302
  2. PHENADONE [Concomitant]
     Indication: PRODUCT USED FOR UNKNOWN INDICATION
     Route: 065

REACTIONS (11)
  - Anaemia [Recovering/Resolving]
  - Abdominal pain upper [Recovered/Resolved]
  - Product use in unapproved indication [Unknown]
  - Renal pain [Recovered/Resolved]
  - Skin discolouration [Recovered/Resolved]
  - Vision blurred [Recovered/Resolved]
  - Epistaxis [Recovered/Resolved]
  - Peripheral swelling [Recovered/Resolved]
  - Renal atrophy [Recovered/Resolved]
  - Movement disorder [Recovering/Resolving]
  - Mouth ulceration [Recovered/Resolved]

NARRATIVE: CASE EVENT DATE: 201901
